FAERS Safety Report 24660623 (Version 1)
Quarter: 2024Q4

REPORT INFORMATION
  Report Type: Spontaneous
  Country: GB (occurrence: GB)
  Receive Date: 20241125
  Receipt Date: 20241125
  Transmission Date: 20250115
  Serious: Yes (Other)
  Sender: MYLAN
  Company Number: GB-MHRA-TPP42185562C1672377YC1732035799907

PATIENT
  Age: 80 Year
  Sex: Female
  Weight: 91 kg

DRUGS (15)
  1. DOXYCYCLINE [Suspect]
     Active Substance: DOXYCYCLINE
     Indication: Ill-defined disorder
     Dosage: 2 DOSAGE FORM (2 ON FIRST DAY THEN 1 DAILY)
     Route: 065
     Dates: start: 20240822
  2. DOXYCYCLINE [Suspect]
     Active Substance: DOXYCYCLINE
     Dosage: 1 DOSAGE FORM, QD (2 ON FIRST DAY THEN 1 DAILY)
     Route: 065
     Dates: end: 20240826
  3. Zerobase [Concomitant]
     Indication: Ill-defined disorder
     Dosage: UNK (USE WHEN REQUIRED AS DIRECTED)
     Route: 065
     Dates: start: 20240108
  4. MEBEVERINE HYDROCHLORIDE [Concomitant]
     Active Substance: MEBEVERINE HYDROCHLORIDE
     Indication: Ill-defined disorder
     Dosage: 1 DOSAGE FORM, TID (TAKE ONE 3 TIMES/DAY AS NEEDED FOR BLOATING)
     Route: 065
     Dates: start: 20240429
  5. MEBEVERINE HYDROCHLORIDE [Concomitant]
     Active Substance: MEBEVERINE HYDROCHLORIDE
     Indication: Abdominal distension
  6. ERYTHROMYCIN [Concomitant]
     Active Substance: ERYTHROMYCIN
     Indication: Ill-defined disorder
     Dosage: 1 DOSAGE FORM, QID (TAKE ONE 4 TIMES/DAY)
     Route: 065
     Dates: start: 20240823, end: 20240830
  7. Adjuvanted quadrivalent influenza vaccine [Concomitant]
     Indication: Ill-defined disorder
     Dosage: UNK (USE AS DIRECTED)
     Route: 065
     Dates: start: 20241014, end: 20241015
  8. Adjuvanted quadrivalent influenza vaccine [Concomitant]
     Indication: Influenza immunisation
  9. BETAMETHASONE VALERATE [Concomitant]
     Active Substance: BETAMETHASONE VALERATE
     Indication: Ill-defined disorder
     Dosage: UNK (APPLY THINLY 1-2 TIMES DAILY)
     Route: 065
     Dates: start: 20241024
  10. CLARITHROMYCIN [Concomitant]
     Active Substance: CLARITHROMYCIN
     Indication: Ill-defined disorder
     Dosage: 1 DOSAGE FORM, BID (TAKE ONE EVERY 12 HRS FOR 5-7 DAYS)
     Route: 065
     Dates: start: 20241119
  11. ATORVASTATIN [Concomitant]
     Active Substance: ATORVASTATIN
     Indication: Ill-defined disorder
     Dosage: 1 DOSAGE FORM, PM (ONE TO BE TAKEN EACH NIGHT)
     Route: 065
     Dates: start: 20240108
  12. CO AMILOFRUSE [Concomitant]
     Active Substance: AMILORIDE HYDROCHLORIDE\FUROSEMIDE
     Indication: Ill-defined disorder
     Dosage: 1 DOSAGE FORM, AM (TAKE ONE EACH MORNING)
     Route: 065
     Dates: start: 20240108
  13. FLUTICASONE PROPIONATE [Concomitant]
     Active Substance: FLUTICASONE PROPIONATE
     Indication: Ill-defined disorder
     Dosage: UNK, QD (SPRAY ONE TO TWO SQUIRTS INTO EACH NOSTRIL ONCE...)
     Route: 065
     Dates: start: 20240108
  14. OMEPRAZOLE [Concomitant]
     Active Substance: OMEPRAZOLE
     Indication: Ill-defined disorder
     Dosage: 1 DOSAGE FORM, QD (TAKE ONE DAILY)
     Route: 065
     Dates: start: 20240108
  15. RAMIPRIL [Concomitant]
     Active Substance: RAMIPRIL
     Indication: Ill-defined disorder
     Dosage: 1 DOSAGE FORM, AM (ONE TO BE TAKEN EACH MORNING)
     Route: 065
     Dates: start: 20240108

REACTIONS (2)
  - Syncope [Unknown]
  - Vomiting [Recovered/Resolved]
